FAERS Safety Report 10226819 (Version 4)
Quarter: 2014Q3

REPORT INFORMATION
  Report Type: Report from Study
  Country: US (occurrence: US)
  Receive Date: 20140610
  Receipt Date: 20140717
  Transmission Date: 20150326
  Serious: Yes (Hospitalization)
  Sender: FDA-Public Use
  Company Number: US-BIOGENIDEC-2014BI052187

PATIENT
  Age: 34 Year
  Sex: Female

DRUGS (1)
  1. TYSABRI [Suspect]
     Active Substance: NATALIZUMAB
     Indication: MULTIPLE SCLEROSIS
     Route: 042
     Dates: start: 201303

REACTIONS (8)
  - Kidney infection [Not Recovered/Not Resolved]
  - Pain [Unknown]
  - Multiple sclerosis relapse [Recovered/Resolved]
  - Malaise [Unknown]
  - Urinary tract infection [Recovered/Resolved]
  - Blood glucose abnormal [Unknown]
  - Abasia [Unknown]
  - Fatigue [Unknown]

NARRATIVE: CASE EVENT DATE: 201405
